FAERS Safety Report 24810976 (Version 5)
Quarter: 2025Q1

REPORT INFORMATION
  Report Type: Spontaneous
  Country: US (occurrence: US)
  Receive Date: 20250106
  Receipt Date: 20250310
  Transmission Date: 20250409
  Serious: No
  Sender: PFIZER
  Company Number: US-PFIZER INC-202400334640

PATIENT
  Age: 14 Year
  Sex: Male
  Weight: 55.991 kg

DRUGS (10)
  1. GENOTROPIN [Suspect]
     Active Substance: SOMATROPIN
     Indication: Short stature
  2. GENOTROPIN [Suspect]
     Active Substance: SOMATROPIN
     Indication: Growth hormone deficiency
     Dosage: 1.8 MG, DAILY
  3. GENOTROPIN [Suspect]
     Active Substance: SOMATROPIN
     Indication: Hypopituitarism
  4. GENOTROPIN [Suspect]
     Active Substance: SOMATROPIN
     Route: 058
  5. GENOTROPIN [Suspect]
     Active Substance: SOMATROPIN
  6. GENOTROPIN [Suspect]
     Active Substance: SOMATROPIN
     Dosage: 1.9 MG SIX DAYS A WEEK (ALTERNATING DOSES OF 1.8MG AND 2.0 MG EVERY OTHER DAY).
  7. GENOTROPIN [Suspect]
     Active Substance: SOMATROPIN
     Dosage: 1.9 MG SIX DAYS A WEEK (ALTERNATING DOSES OF 1.8MG AND 2.0 MG EVERY OTHER DAY).
  8. GENOTROPIN [Suspect]
     Active Substance: SOMATROPIN
  9. GENOTROPIN [Suspect]
     Active Substance: SOMATROPIN
     Dosage: 1.9 MG SIX DAYS A WEEK (ALTERNATING DOSES OF 1.8MG AND 2.0 MG EVERY OTHER DAY).
  10. GENOTROPIN [Suspect]
     Active Substance: SOMATROPIN
     Dosage: 1.9 MG SIX DAYS A WEEK (ALTERNATING DOSES OF 1.8MG AND 2.0 MG EVERY OTHER DAY).

REACTIONS (6)
  - Insulin-like growth factor increased [Unknown]
  - Drug dose omission by device [Unknown]
  - Device use issue [Unknown]
  - Device power source issue [Unknown]
  - Device information output issue [Unknown]
  - Product prescribing error [Unknown]

NARRATIVE: CASE EVENT DATE: 20241226
